FAERS Safety Report 18665002 (Version 1)
Quarter: 2020Q4

REPORT INFORMATION
  Report Type: Spontaneous
  Country: DE (occurrence: DE)
  Receive Date: 20201225
  Receipt Date: 20201225
  Transmission Date: 20210114
  Serious: Yes (Hospitalization)
  Sender: FDA-Public Use
  Company Number: DE-TEVA-2020-DE-1860808

PATIENT
  Age: 16 Year
  Sex: Female
  Weight: 68 kg

DRUGS (3)
  1. TORASEMID 10MG [Suspect]
     Active Substance: TORSEMIDE
     Dosage: 10-11
     Route: 048
  2. MIRTAZAPIN 30MG [Suspect]
     Active Substance: MIRTAZAPINE
     Dosage: 1-2
     Route: 048
  3. PROMETHAZIN 75MG [Suspect]
     Active Substance: PROMETHAZINE HYDROCHLORIDE
     Dosage: 2-3
     Route: 048

REACTIONS (5)
  - Toxicity to various agents [Recovered/Resolved]
  - Intentional overdose [Recovered/Resolved]
  - Substance abuse [Recovered/Resolved]
  - Nausea [Recovered/Resolved]
  - Abdominal pain [Recovered/Resolved]

NARRATIVE: CASE EVENT DATE: 20190316
